FAERS Safety Report 9729123 (Version 2)
Quarter: 2013Q4

REPORT INFORMATION
  Report Type: Spontaneous
  Country: RU (occurrence: RU)
  Receive Date: 20131204
  Receipt Date: 20131204
  Transmission Date: 20140711
  Serious: Yes (Hospitalization)
  Sender: FDA-Public Use
  Company Number: RU-009507513-1310RUS012903

PATIENT
  Age: 32 Year
  Sex: Female
  Weight: 49 kg

DRUGS (1)
  1. NUVARING [Suspect]
     Dosage: UNK
     Route: 067
     Dates: start: 20131016, end: 20131026

REACTIONS (3)
  - Haemorrhage [Recovered/Resolved]
  - Metrorrhagia [Recovered/Resolved]
  - Headache [Recovered/Resolved]
